FAERS Safety Report 4844063-8 (Version None)
Quarter: 2005Q4

REPORT INFORMATION
  Report Type: 
  Country: None (occurrence: None)
  Receive Date: 20051202
  Receipt Date: 20050708
  Transmission Date: 20060501
  Serious: Yes (Hospitalization, Disabling)
  Sender: FDA-Public Use
  Company Number: NL-ROCHE-410425

PATIENT
  Age: 47 Year
  Sex: Female

DRUGS (3)
  1. PEGASYS [Suspect]
     Indication: HEPATITIS C
     Route: 058
     Dates: start: 20040601, end: 20050426
  2. COPEGUS [Suspect]
     Indication: HEPATITIS C
     Route: 048
     Dates: start: 20040601, end: 20050503
  3. THYRAX [Concomitant]
     Indication: THYROID DISORDER
     Route: 048
     Dates: start: 19980615

REACTIONS (15)
  - ARTHRITIS [None]
  - CHILLS [None]
  - CONDYLOMA ACUMINATUM [None]
  - COORDINATION ABNORMAL [None]
  - MALAISE [None]
  - MOTOR DYSFUNCTION [None]
  - MUSCULAR WEAKNESS [None]
  - PAIN [None]
  - PROGRESSIVE MULTIFOCAL LEUKOENCEPHALOPATHY [None]
  - PSORIASIS [None]
  - RASH [None]
  - SKIN BURNING SENSATION [None]
  - SWELLING [None]
  - TINNITUS [None]
  - VISION BLURRED [None]
